FAERS Safety Report 4814553-2 (Version None)
Quarter: 2005Q4

REPORT INFORMATION
  Report Type: 
  Country: None (occurrence: None)
  Receive Date: 20051028
  Receipt Date: 20041207
  Transmission Date: 20060501
  Serious: No
  Sender: FDA-Public Use
  Company Number: US-GLAXOSMITHKLINE-A0536593A

PATIENT
  Age: 10 Year
  Sex: Male

DRUGS (5)
  1. ADVAIR DISKUS 100/50 [Suspect]
     Indication: ASTHMA
     Dosage: 1PUFF TWICE PER DAY
     Route: 055
     Dates: start: 20041101
  2. ALBUTEROL [Concomitant]
  3. SINGULAIR [Concomitant]
  4. ZYRTEC [Concomitant]
  5. XOPENEX [Concomitant]

REACTIONS (1)
  - DYSGEUSIA [None]
